FAERS Safety Report 23911978 (Version 2)
Quarter: 2024Q3

REPORT INFORMATION
  Report Type: Spontaneous
  Country: US (occurrence: US)
  Receive Date: 20240528
  Receipt Date: 20240805
  Transmission Date: 20241017
  Serious: Yes (Other)
  Sender: PFIZER
  Company Number: US-PFIZER INC-PV202400069255

PATIENT
  Age: 69 Year
  Sex: Male
  Weight: 96.145 kg

DRUGS (1)
  1. PAXLOVID [Suspect]
     Active Substance: NIRMATRELVIR\RITONAVIR
     Indication: COVID-19 treatment
     Dosage: 150 MG, 2X/DAY
     Route: 048
     Dates: start: 20240521, end: 20240528

REACTIONS (5)
  - Haematochezia [Recovering/Resolving]
  - Rectal haemorrhage [Unknown]
  - Dysgeusia [Recovering/Resolving]
  - Diarrhoea [Recovering/Resolving]
  - Inappropriate schedule of product administration [Unknown]

NARRATIVE: CASE EVENT DATE: 20240501
